FAERS Safety Report 4674747-6 (Version None)
Quarter: 2005Q2

REPORT INFORMATION
  Report Type: 
  Country: None (occurrence: None)
  Receive Date: 20050526
  Receipt Date: 20050520
  Transmission Date: 20051028
  Serious: Yes (Disabling, Other)
  Sender: FDA-Public Use
  Company Number: PHEH2005US05786

PATIENT
  Age: 62 Year
  Sex: Female

DRUGS (3)
  1. TEGRETOL-XR [Suspect]
     Indication: CONVULSION
     Dosage: 200 MG, TID
     Route: 048
  2. TOPROL-XL [Concomitant]
  3. ALLERGY MEDICATION [Concomitant]

REACTIONS (8)
  - ABASIA [None]
  - APLASTIC ANAEMIA [None]
  - ASTHENIA [None]
  - HYPOAESTHESIA [None]
  - MEAN CELL HAEMOGLOBIN CONCENTRATION DECREASED [None]
  - PARAESTHESIA [None]
  - ROAD TRAFFIC ACCIDENT [None]
  - WHITE BLOOD CELL COUNT ABNORMAL [None]
